FAERS Safety Report 8557361-1 (Version None)
Quarter: 2012Q3

REPORT INFORMATION
  Report Type: 
  Country: None (occurrence: None)
  Receive Date: 20120801
  Receipt Date: 20120730
  Transmission Date: 20120928
  Serious: Yes (Hospitalization)
  Sender: FDA-Public Use
  Company Number: JP-PFIZER INC-2012155128

PATIENT
  Age: 3 Month
  Sex: Male
  Weight: 6.1 kg

DRUGS (4)
  1. DEPAS [Suspect]
     Dosage: UNK
     Route: 064
     Dates: start: 20120201, end: 20120320
  2. ZOLOFT [Suspect]
     Dosage: UNK
     Route: 064
     Dates: start: 20120201, end: 20120320
  3. DEPAS [Suspect]
     Dosage: UNK
     Route: 063
     Dates: start: 20120301
  4. ZOLOFT [Suspect]
     Dosage: UNK
     Route: 063
     Dates: start: 20120301

REACTIONS (4)
  - HEPATIC FAILURE [None]
  - RHABDOMYOLYSIS [None]
  - MATERNAL EXPOSURE TIMING UNSPECIFIED [None]
  - EXPOSURE DURING BREAST FEEDING [None]
